FAERS Safety Report 9329340 (Version 1)
Quarter: 2013Q2

REPORT INFORMATION
  Report Type: Spontaneous
  Country: US (occurrence: US)
  Receive Date: 20130604
  Receipt Date: 20130604
  Transmission Date: 20140414
  Serious: No
  Sender: FDA-Public Use
  Company Number: US-SANOFI-AVENTIS-2012SA082302

PATIENT
  Sex: Female

DRUGS (2)
  1. LANTUS SOLOSTAR [Suspect]
     Dosage: DOSE:12 UNIT(S)
     Route: 058
  2. SOLOSTAR [Suspect]

REACTIONS (6)
  - Pyrexia [Unknown]
  - Dizziness [Unknown]
  - Injection site rash [Unknown]
  - Injection site swelling [Unknown]
  - Pain [Unknown]
  - Injection site erythema [Unknown]
